FAERS Safety Report 4375079-6 (Version None)
Quarter: 2004Q2

REPORT INFORMATION
  Report Type: 
  Country: None (occurrence: None)
  Receive Date: 20040603
  Receipt Date: 20040526
  Transmission Date: 20050107
  Serious: Yes (Death)
  Sender: FDA-Public Use
  Company Number: 2004AP02899

PATIENT
  Age: 67 Year
  Sex: Male

DRUGS (1)
  1. IRESSA [Suspect]
     Dosage: 250 MG DAILY PO
     Route: 048
     Dates: start: 20040421, end: 20040430

REACTIONS (2)
  - INTERSTITIAL LUNG DISEASE [None]
  - PNEUMOTHORAX [None]
